FAERS Safety Report 9187924 (Version 1)
Quarter: 2013Q1

REPORT INFORMATION
  Report Type: Report from Study
  Country: CN (occurrence: CN)
  Receive Date: 20130325
  Receipt Date: 20130325
  Transmission Date: 20140127
  Serious: Yes (Other)
  Sender: FDA-Public Use
  Company Number: CN-ROCHE-1204122

PATIENT
  Sex: Female

DRUGS (2)
  1. BEVACIZUMAB [Suspect]
     Indication: BREAST CANCER
     Route: 042
  2. DOCETAXEL [Suspect]
     Indication: BREAST CANCER
     Route: 042

REACTIONS (5)
  - Thrombosis [Unknown]
  - Neutropenia [Unknown]
  - Nail toxicity [Recovering/Resolving]
  - Hypertension [Recovering/Resolving]
  - Proteinuria [Unknown]
